FAERS Safety Report 8839130 (Version 1)
Quarter: 2012Q4

REPORT INFORMATION
  Report Type: Spontaneous
  Country: US (occurrence: None)
  Receive Date: 20121011
  Receipt Date: 20121011
  Transmission Date: 20130627
  Serious: Yes (Death)
  Sender: FDA-Public Use
  Company Number: None

PATIENT
  Age: 66 Year
  Sex: Male
  Weight: 95.26 kg

DRUGS (1)
  1. LOVENOX [Suspect]
     Indication: PREVENTION
     Dates: start: 20100908, end: 20100913

REACTIONS (3)
  - Retroperitoneal haematoma [None]
  - Renal failure [None]
  - Cardiac failure [None]
